FAERS Safety Report 7738461-2 (Version None)
Quarter: 2011Q3

REPORT INFORMATION
  Report Type: 
  Country: None (occurrence: None)
  Receive Date: 20110908
  Receipt Date: 20110831
  Transmission Date: 20111222
  Serious: Yes (Hospitalization, Other)
  Sender: FDA-Public Use
  Company Number: NL-BAXTER-2011BH028339

PATIENT
  Age: 68 Year
  Sex: Male

DRUGS (12)
  1. GAMMAGARD LIQUID [Suspect]
     Indication: MULTIPLE SCLEROSIS
     Route: 042
     Dates: start: 20110804
  2. GAMMAGARD LIQUID [Suspect]
     Indication: OFF LABEL USE
     Route: 042
     Dates: start: 20110804
  3. GAMMAGARD LIQUID [Suspect]
     Route: 042
     Dates: start: 20091216
  4. GAMMAGARD LIQUID [Suspect]
     Route: 042
     Dates: start: 20110831
  5. GAMMAGARD LIQUID [Suspect]
     Route: 042
     Dates: start: 20110804
  6. GAMMAGARD LIQUID [Suspect]
     Route: 042
     Dates: start: 20110831
  7. GAMMAGARD LIQUID [Suspect]
     Route: 042
     Dates: start: 20091216
  8. GAMMAGARD LIQUID [Suspect]
     Route: 042
     Dates: start: 20110831
  9. GAMMAGARD LIQUID [Suspect]
     Route: 042
     Dates: start: 20091216
  10. GAMMAGARD LIQUID [Suspect]
     Route: 042
     Dates: start: 20110804
  11. GAMMAGARD LIQUID [Suspect]
     Route: 042
     Dates: start: 20091216
  12. GAMMAGARD LIQUID [Suspect]
     Route: 042
     Dates: start: 20110831

REACTIONS (3)
  - ARRHYTHMIA [None]
  - HOSPITALISATION [None]
  - MEDICATION ERROR [None]
